FAERS Safety Report 24783417 (Version 3)
Quarter: 2025Q1

REPORT INFORMATION
  Report Type: Spontaneous
  Country: CN (occurrence: CN)
  Receive Date: 20241227
  Receipt Date: 20250124
  Transmission Date: 20250409
  Serious: Yes (Hospitalization, Other)
  Sender: GLAXOSMITHKLINE
  Company Number: CN-GSK-CN2024APC161496

PATIENT

DRUGS (1)
  1. LAMICTAL [Suspect]
     Active Substance: LAMOTRIGINE
     Indication: Product used for unknown indication
     Route: 064

REACTIONS (7)
  - Amniotic cavity infection [Unknown]
  - Poor quality sleep [Unknown]
  - Hiccups [Unknown]
  - Crying [Unknown]
  - Rash erythematous [Unknown]
  - Rash [Not Recovered/Not Resolved]
  - Foetal exposure during pregnancy [Unknown]
